FAERS Safety Report 9166418 (Version 2)
Quarter: 2013Q2

REPORT INFORMATION
  Report Type: Spontaneous
  Country: US (occurrence: US)
  Receive Date: 20130315
  Receipt Date: 20130404
  Transmission Date: 20140414
  Serious: Yes (Hospitalization)
  Sender: FDA-Public Use
  Company Number: PHEH2013US005983

PATIENT
  Age: 81 Year
  Sex: Male

DRUGS (1)
  1. TOBI [Suspect]
     Indication: BRONCHIECTASIS
     Dosage: 300 MG, BID
     Dates: start: 201104

REACTIONS (2)
  - Cardiac failure congestive [Not Recovered/Not Resolved]
  - Emphysema [Not Recovered/Not Resolved]
